FAERS Safety Report 17006297 (Version 1)
Quarter: 2019Q4

REPORT INFORMATION
  Report Type: Spontaneous
  Country: US (occurrence: US)
  Receive Date: 20191107
  Receipt Date: 20191107
  Transmission Date: 20200122
  Serious: No
  Sender: FDA-Public Use
  Company Number: US-009507513-1910USA017557

PATIENT
  Sex: Male

DRUGS (2)
  1. MYRBETRIQ [Suspect]
     Active Substance: MIRABEGRON
     Indication: PROSTATOMEGALY
  2. BELSOMRA [Suspect]
     Active Substance: SUVOREXANT
     Indication: PROSTATOMEGALY
     Dosage: UNK
     Route: 048
     Dates: start: 201910

REACTIONS (4)
  - Circumstance or information capable of leading to medication error [Unknown]
  - Drug ineffective [Not Recovered/Not Resolved]
  - Product use in unapproved indication [Unknown]
  - No adverse event [Unknown]

NARRATIVE: CASE EVENT DATE: 201910
